FAERS Safety Report 8833470 (Version 1)
Quarter: 2012Q4

REPORT INFORMATION
  Report Type: 
  Country: FR (occurrence: FR)
  Receive Date: 20121010
  Receipt Date: 20121010
  Transmission Date: 20130627
  Serious: Yes (Hospitalization, Other)
  Sender: FDA-Public Use
  Company Number: PHHY2012FR087795

PATIENT
  Age: 88 Year
  Sex: Female

DRUGS (11)
  1. ESIDREX [Suspect]
     Indication: CARDIAC FAILURE
     Route: 048
     Dates: start: 20120820, end: 20120906
  2. BISOPROLOL [Suspect]
     Indication: CARDIAC FAILURE
     Dates: start: 20120808, end: 20120907
  3. MEDIATENSYL [Suspect]
     Indication: CARDIAC FAILURE
     Route: 048
     Dates: start: 20120816, end: 20120905
  4. ROCEPHINE [Suspect]
     Indication: URINARY TRACT INFECTION
     Route: 048
     Dates: start: 20120817, end: 20120826
  5. LASILIX [Suspect]
     Dosage: UNK UKN, UNK
  6. LASILIX [Suspect]
     Dosage: 250 mg, daily
     Route: 042
  7. CALCIPARIN [Concomitant]
     Dates: start: 20120807, end: 20120816
  8. RISORDAN [Concomitant]
     Dates: start: 20120808, end: 20120821
  9. ATACAND [Concomitant]
  10. KARDEGIC [Concomitant]
  11. LERCAN [Concomitant]

REACTIONS (6)
  - Rash maculo-papular [Recovered/Resolved]
  - Rash [Recovered/Resolved]
  - Skin lesion [Recovered/Resolved]
  - Eosinophilia [Recovered/Resolved]
  - Infection parasitic [Unknown]
  - Renal failure acute [Unknown]
